FAERS Safety Report 17648328 (Version 1)
Quarter: 2020Q2

REPORT INFORMATION
  Report Type: Spontaneous
  Country: US (occurrence: US)
  Receive Date: 20200408
  Receipt Date: 20200408
  Transmission Date: 20200713
  Serious: No
  Sender: FDA-Public Use
  Company Number: US-ASTRAZENECA-2020SE45249

PATIENT
  Age: 30182 Day
  Sex: Female
  Weight: 71.7 kg

DRUGS (1)
  1. MOVANTIK [Suspect]
     Active Substance: NALOXEGOL OXALATE
     Indication: CONSTIPATION
     Dosage: 12.5MG UNKNOWN
     Route: 048
     Dates: start: 202003

REACTIONS (6)
  - Malaise [Unknown]
  - Drug ineffective [Recovered/Resolved]
  - Gastrointestinal pain [Unknown]
  - Nausea [Unknown]
  - Diarrhoea [Unknown]
  - Faeces hard [Unknown]

NARRATIVE: CASE EVENT DATE: 20200326
